FAERS Safety Report 5051345-6 (Version None)
Quarter: 2006Q3

REPORT INFORMATION
  Report Type: 
  Country: None (occurrence: None)
  Receive Date: 20060714
  Receipt Date: 20060711
  Transmission Date: 20061208
  Serious: Yes (Death)
  Sender: FDA-Public Use
  Company Number: AT-MERCK-0607AUT00007

PATIENT
  Age: 67 Year
  Sex: Male

DRUGS (1)
  1. ZETIA [Suspect]
     Indication: LIPID METABOLISM DISORDER
     Route: 048
     Dates: end: 20060612

REACTIONS (3)
  - CIRCULATORY COLLAPSE [None]
  - DIZZINESS [None]
  - SUDDEN DEATH [None]
